FAERS Safety Report 6655920-4 (Version None)
Quarter: 2010Q1

REPORT INFORMATION
  Report Type: 
  Country: None (occurrence: None)
  Receive Date: 20100329
  Receipt Date: 20100317
  Transmission Date: 20100710
  Serious: Yes (Other)
  Sender: FDA-Public Use
  Company Number: PHHY2010DE17114

PATIENT
  Age: 80 Year
  Sex: Female

DRUGS (1)
  1. DIOVAN FORTE [Suspect]
     Dosage: 320 MG, UNK
     Route: 048
     Dates: start: 20090101, end: 20090701

REACTIONS (3)
  - BLOOD PRESSURE INADEQUATELY CONTROLLED [None]
  - DIZZINESS [None]
  - KNEE ARTHROPLASTY [None]
